FAERS Safety Report 9284785 (Version 2)
Quarter: 2013Q2

REPORT INFORMATION
  Report Type: Report from Study
  Country: GB (occurrence: GB)
  Receive Date: 20130513
  Receipt Date: 20130515
  Transmission Date: 20140414
  Serious: Yes (Life-Threatening)
  Sender: FDA-Public Use
  Company Number: GB-ROCHE-1223330

PATIENT
  Age: 68 Year
  Sex: Female
  Weight: 50.5 kg

DRUGS (7)
  1. BEVACIZUMAB [Suspect]
     Indication: COLON CANCER
     Route: 042
     Dates: start: 20130412
  2. RAMIPRIL [Concomitant]
     Indication: HYPERTENSION
     Route: 048
  3. BENDROFLUMETHIAZID [Concomitant]
     Indication: HYPERTENSION
     Route: 048
  4. CIPROFLOXACIN [Concomitant]
     Indication: NEUTROPENIA
     Route: 065
     Dates: start: 20130405, end: 20130429
  5. ACICLOVIR [Concomitant]
     Indication: MUCOSAL INFLAMMATION
     Route: 065
     Dates: start: 20130422
  6. FLUCONAZOLE [Concomitant]
     Indication: ORAL CANDIDIASIS
     Route: 048
     Dates: start: 20130422
  7. DIFFLAM [Concomitant]
     Indication: MUCOSAL INFLAMMATION
     Route: 048
     Dates: start: 20130422

REACTIONS (1)
  - Renal failure acute [Unknown]
